FAERS Safety Report 14568222 (Version 2)
Quarter: 2018Q2

REPORT INFORMATION
  Report Type: Spontaneous
  Country: DE (occurrence: DE)
  Receive Date: 20180223
  Receipt Date: 20180403
  Transmission Date: 20180711
  Serious: Yes (Hospitalization, Disabling)
  Sender: FDA-Public Use
  Company Number: DE-BAYER-2018-031177

PATIENT
  Age: 64 Year
  Sex: Female
  Weight: 89 kg

DRUGS (10)
  1. NOVORAPID [Concomitant]
     Active Substance: INSULIN ASPART
     Indication: DIABETES MELLITUS
  2. CIPROFLOXACIN. [Suspect]
     Active Substance: CIPROFLOXACIN
     Indication: NOSOCOMIAL INFECTION
     Route: 042
  3. VITAMIN D [Concomitant]
     Active Substance: CHOLECALCIFEROL
  4. NOVALGIN (METAMIZOLE SODIUM) [Concomitant]
     Active Substance: METAMIZOLE SODIUM
     Indication: DIABETES MELLITUS
  5. CEFPODOXIME [Concomitant]
     Active Substance: CEFPODOXIME
     Indication: NOSOCOMIAL INFECTION
     Dosage: 200 MG, UNK
     Dates: start: 2013, end: 2013
  6. CIPROFLOXACIN. [Suspect]
     Active Substance: CIPROFLOXACIN
     Indication: NOSOCOMIAL INFECTION
     Route: 042
  7. LISILICH COMP [Concomitant]
     Indication: HYPERTENSION
     Route: 048
  8. LISINOPRIL. [Concomitant]
     Active Substance: LISINOPRIL
     Route: 048
  9. CEFPODOXIME [Concomitant]
     Active Substance: CEFPODOXIME
     Indication: NOSOCOMIAL INFECTION
     Dosage: 200 MG, UNK
     Dates: start: 2013, end: 2013
  10. PRAVASTATIN. [Concomitant]
     Active Substance: PRAVASTATIN

REACTIONS (6)
  - Gait disturbance [Not Recovered/Not Resolved]
  - Tendon pain [Unknown]
  - Dizziness [Unknown]
  - Asthenia [Unknown]
  - Circulatory collapse [Unknown]
  - Pyrexia [Unknown]

NARRATIVE: CASE EVENT DATE: 201303
